FAERS Safety Report 11813793 (Version 1)
Quarter: 2015Q4

REPORT INFORMATION
  Report Type: Spontaneous
  Country: US (occurrence: US)
  Receive Date: 20151209
  Receipt Date: 20151209
  Transmission Date: 20160305
  Serious: No
  Sender: FDA-Public Use
  Company Number: US-PFIZER INC-2015398519

PATIENT
  Age: 75 Year
  Sex: Male
  Weight: 113 kg

DRUGS (1)
  1. CLINDAMYCIN PHOSPHATE. [Suspect]
     Active Substance: CLINDAMYCIN PHOSPHATE
     Indication: BLISTER
     Dosage: 1 %, AS NEEDED (2-3 TIMES DAILY)
     Route: 061
     Dates: start: 20150910

REACTIONS (1)
  - Burning sensation [Unknown]
